FAERS Safety Report 21640335 (Version 1)
Quarter: 2022Q4

REPORT INFORMATION
  Report Type: Report from Study
  Country: KR (occurrence: KR)
  Receive Date: 20221124
  Receipt Date: 20221124
  Transmission Date: 20230112
  Serious: Yes (Hospitalization)
  Sender: FDA-Public Use
  Company Number: KR-TAKEDA-2022TUS087676

PATIENT
  Age: 64 Year
  Sex: Female

DRUGS (5)
  1. MOBOCERTINIB [Suspect]
     Active Substance: MOBOCERTINIB
     Indication: Non-small cell lung cancer
     Dosage: 120 MILLIGRAM, QD
     Route: 048
     Dates: start: 20220817, end: 20221105
  2. MOBOCERTINIB [Suspect]
     Active Substance: MOBOCERTINIB
     Dosage: 120 MILLIGRAM, QD
     Route: 048
     Dates: start: 20221113
  3. LOPERAMIDE [Concomitant]
     Active Substance: LOPERAMIDE
     Indication: Diarrhoea
     Dosage: 2 MILLIGRAM
     Route: 048
     Dates: start: 20220805
  4. ROSUVASTATIN;TELMISARTAN [Concomitant]
     Indication: Hypertension
     Dosage: UNK UNK, QD
     Route: 048
     Dates: start: 20220709
  5. CLOCIN [Concomitant]
     Indication: Rash
     Dosage: UNK
     Route: 061
     Dates: start: 20220805, end: 20220828

REACTIONS (1)
  - COVID-19 [Recovered/Resolved]

NARRATIVE: CASE EVENT DATE: 20221105
